FAERS Safety Report 9393131 (Version 1)
Quarter: 2013Q3

REPORT INFORMATION
  Report Type: Spontaneous
  Country: US (occurrence: US)
  Receive Date: 20130710
  Receipt Date: 20130710
  Transmission Date: 20140515
  Serious: Yes (Other)
  Sender: FDA-Public Use
  Company Number: US-ELI_LILLY_AND_COMPANY-US201306009438

PATIENT
  Age: 17 Year
  Sex: Female

DRUGS (4)
  1. PROZAC [Suspect]
     Indication: DEPRESSION
     Dosage: 40 MG, QD
     Route: 065
     Dates: start: 201005
  2. PROZAC [Interacting]
     Dosage: 40 MG, BID
     Route: 065
  3. WELLBUTRIN [Interacting]
     Indication: MIGRAINE
     Dosage: 1 DF, UNKNOWN
     Route: 065
  4. ADVIL /00109201/ [Interacting]
     Dosage: 1 DF, UNKNOWN
     Route: 065

REACTIONS (8)
  - Neutropenia [Unknown]
  - Migraine [Unknown]
  - Fall [Unknown]
  - Concussion [Unknown]
  - Drug interaction [Unknown]
  - Platelet function test abnormal [Unknown]
  - Contusion [Unknown]
  - Memory impairment [Unknown]
